FAERS Safety Report 9479475 (Version 2)
Quarter: 2013Q3

REPORT INFORMATION
  Report Type: Report from Study
  Country: US (occurrence: US)
  Receive Date: 20130827
  Receipt Date: 20130827
  Transmission Date: 20140515
  Serious: Yes (Death)
  Sender: FDA-Public Use
  Company Number: US-ROCHE-699141

PATIENT
  Age: 84 Year
  Sex: Male
  Weight: 87.7 kg

DRUGS (2)
  1. RITUXIMAB [Suspect]
     Indication: RHEUMATOID ARTHRITIS
     Route: 042
     Dates: start: 20070821, end: 20080324
  2. RITUXIMAB [Suspect]
     Dosage: 1000 MG, Q6M
     Route: 042
     Dates: start: 20070821, end: 20080324

REACTIONS (1)
  - Death [Fatal]
